FAERS Safety Report 9713234 (Version 2)
Quarter: 2013Q4

REPORT INFORMATION
  Report Type: Spontaneous
  Country: US (occurrence: US)
  Receive Date: 20131126
  Receipt Date: 20131126
  Transmission Date: 20140711
  Serious: Yes (Other)
  Sender: FDA-Public Use
  Company Number: US-ASTELLAS-2013US008911

PATIENT
  Sex: Female

DRUGS (1)
  1. LEXISCAN [Suspect]
     Indication: CHEST PAIN
     Dosage: UNK
     Route: 042
     Dates: start: 2011, end: 2011

REACTIONS (1)
  - Myocardial infarction [Unknown]
